FAERS Safety Report 7800142-4 (Version None)
Quarter: 2011Q4

REPORT INFORMATION
  Report Type: 
  Country: None (occurrence: None)
  Receive Date: 20111006
  Receipt Date: 20110929
  Transmission Date: 20120403
  Serious: Yes (Other)
  Sender: FDA-Public Use
  Company Number: FR-B.I. PHARMACEUTICALS,INC./RIDGEFIELD-2011-DE-05492GD

PATIENT
  Sex: Female

DRUGS (3)
  1. CATAPRES [Suspect]
     Indication: LABOUR PAIN
     Dosage: MANUAL INJECTIONS (1.36MCG/ML) FOR INDUCTION ANALGESIA PERFORMED BY AN ANAESTHESIST, FOLLOWED BY SEL
     Route: 008
  2. SUFENTANIL CITRATE [Suspect]
     Indication: LABOUR PAIN
     Dosage: MANUAL INJECTIONS (0.45MCG/ML) FOR INDUCTION ANALGESIA PERFORMED BY AN ANAESTHESIST, FOLLOWED BY SEL
     Route: 008
  3. CHIROCAINE [Suspect]
     Indication: LABOUR PAIN
     Dosage: MANUAL INJECTIONS (0.568MG/ML) FOR INDUCTION ANALGESIA PERFORMED BY AN ANAESTHESIST, FOLLOWED BY SEL
     Route: 008

REACTIONS (1)
  - HYPOTENSION [None]
